FAERS Safety Report 7129631-5 (Version None)
Quarter: 2010Q4

REPORT INFORMATION
  Report Type: 
  Country: None (occurrence: None)
  Receive Date: 20101130
  Receipt Date: 20101118
  Transmission Date: 20110411
  Serious: Yes (Hospitalization)
  Sender: FDA-Public Use
  Company Number: DE-PFIZER INC-2010151451

PATIENT
  Age: 30 Year
  Sex: Female

DRUGS (10)
  1. VENLAFAXINE HCL [Suspect]
     Dosage: 225 MG, 1X/DAY
     Route: 048
     Dates: start: 20100831, end: 20101010
  2. VENLAFAXINE HCL [Suspect]
     Dosage: 150 MG, 1X/DAY
     Route: 048
  3. LORAZEPAM [Suspect]
     Dosage: 6-2 MG, 1X/DAY
     Route: 048
     Dates: start: 20100820, end: 20100929
  4. LORAZEPAM [Suspect]
     Dosage: 1.5 MG, 1X/DAY
     Route: 048
     Dates: start: 20100930, end: 20101004
  5. LORAZEPAM [Suspect]
     Dosage: 1 MG, 1X/DAY
     Route: 048
     Dates: start: 20101005, end: 20101005
  6. LORAZEPAM [Suspect]
     Dosage: 0.5 MG, 1X/DAY
     Route: 048
     Dates: start: 20101006, end: 20101009
  7. QUETIAPINE FUMARATE [Suspect]
     Dosage: 0-900 MG, 1X/DAY
     Route: 048
     Dates: start: 20100903, end: 20101004
  8. QUETIAPINE FUMARATE [Suspect]
     Dosage: 900 MG, 1X/DAY
     Route: 048
     Dates: start: 20101005, end: 20101010
  9. QUETIAPINE FUMARATE [Suspect]
     Dosage: 550 MG, 1X/DAY
     Route: 048
     Dates: start: 20101010
  10. PANTOPRAZOLE SODIUM [Concomitant]
     Dosage: 20 MG, 1X/DAY
     Route: 048

REACTIONS (2)
  - DRUG LEVEL INCREASED [None]
  - GRAND MAL CONVULSION [None]
